FAERS Safety Report 8080167-7 (Version None)
Quarter: 2012Q1

REPORT INFORMATION
  Report Type: 
  Country: None (occurrence: None)
  Receive Date: 20120130
  Receipt Date: 20120116
  Transmission Date: 20120608
  Serious: Yes (Other)
  Sender: FDA-Public Use
  Company Number: PHBS2007JP20878

PATIENT
  Age: 6 Year
  Sex: Male

DRUGS (13)
  1. SANDIMMUNE [Suspect]
     Dosage: 3MG/KG/DAY, DIVIDED INTO TWO DOSES
  2. BLOOD TRANSFUSION, AUXILIARY PRODUCTS [Concomitant]
  3. ANTI-THYMOCYTE GLOBULIN EQUINE NOS [Concomitant]
     Indication: STEM CELL TRANSPLANT
     Dosage: 2.5 MG/KG
  4. FLUDARABINE [Concomitant]
     Indication: STEM CELL TRANSPLANT
     Dosage: 30 MG/KG
  5. AMPHOTERICIN B [Concomitant]
     Indication: BRONCHOPULMONARY ASPERGILLOSIS
  6. VORICONAZOLE [Concomitant]
     Indication: STEM CELL TRANSPLANT
  7. CYCLOPHOSPHAMIDE [Concomitant]
     Indication: STEM CELL TRANSPLANT
     Dosage: 120 MG/KG , OVER 4 DAYS (DAYS -5 TO -2)
  8. SANDIMMUNE [Suspect]
     Indication: PROPHYLAXIS AGAINST GRAFT VERSUS HOST DISEASE
     Dosage: 60 MG/D
     Route: 042
     Dates: start: 20070419, end: 20070620
  9. METHOTREXATE [Concomitant]
     Indication: PROPHYLAXIS AGAINST GRAFT VERSUS HOST DISEASE
     Dates: start: 20070421, end: 20070501
  10. ANTI-THYMOCYTE GLOBULIN EQUINE NOS [Concomitant]
     Dosage: 8 MG/KG OVER 4 DAYS (DAYS -5 TO -2)
  11. FLUDARABINE [Concomitant]
     Dosage: 180 MG/M^2, OVER 6 DAYS (DAYS -7 TO -2)
  12. METHOTREXATE [Concomitant]
     Dosage: 15 MG/M^2; DAY L
  13. METHOTREXATE [Concomitant]
     Dosage: 10 MG/M^2, DAYS 3, 6, AND 11

REACTIONS (7)
  - FEBRILE NEUTROPENIA [None]
  - CYTOMEGALOVIRUS INFECTION [None]
  - HAEMOLYTIC ANAEMIA [None]
  - BLOOD CREATININE INCREASED [None]
  - CYSTITIS VIRAL [None]
  - STOMATITIS [None]
  - BK VIRUS INFECTION [None]
